FAERS Safety Report 18258252 (Version 1)
Quarter: 2020Q3

REPORT INFORMATION
  Report Type: Spontaneous
  Country: US (occurrence: US)
  Receive Date: 20200911
  Receipt Date: 20200911
  Transmission Date: 20201103
  Serious: No
  Sender: FDA-Public Use
  Company Number: US-SA-2020SA153185

PATIENT

DRUGS (2)
  1. LANTUS [Suspect]
     Active Substance: INSULIN GLARGINE
     Indication: TYPE 2 DIABETES MELLITUS
     Dosage: 80 IU, QD
     Route: 065
  2. LANTUS [Suspect]
     Active Substance: INSULIN GLARGINE
     Dosage: 80 IU, BID
     Route: 065

REACTIONS (5)
  - Dyspnoea [Unknown]
  - Grunting [Unknown]
  - Inappropriate schedule of product administration [Unknown]
  - Moaning [Unknown]
  - Wrong technique in device usage process [Unknown]
